FAERS Safety Report 9563901 (Version 2)
Quarter: 2013Q4

REPORT INFORMATION
  Report Type: Spontaneous
  Country: US (occurrence: US)
  Receive Date: 20130927
  Receipt Date: 20131007
  Transmission Date: 20140711
  Serious: Yes (Death)
  Sender: FDA-Public Use
  Company Number: US-009507513-1309USA011863

PATIENT
  Age: 62 Year
  Sex: Female

DRUGS (1)
  1. TEMODAR [Suspect]
     Dosage: 330MG BY COMBINING 250 MG AND 20 MG FOR 5 DAYS EVERY 28 DAYS
     Route: 048
     Dates: start: 20130207

REACTIONS (1)
  - Death [Fatal]
